FAERS Safety Report 9752115 (Version 1)
Quarter: 2013Q4

REPORT INFORMATION
  Report Type: Spontaneous
  Country: IT (occurrence: None)
  Receive Date: 20131211
  Receipt Date: 20131211
  Transmission Date: 20140711
  Serious: Yes (Hospitalization)
  Sender: FDA-Public Use
  Company Number: FK201305207

PATIENT
  Age: 24 Year
  Sex: Female

DRUGS (1)
  1. CEFTRIAXON (MANUFACTURER UNKNOWN) (CEFTRIAXON-DINATRIUM) (CEFTRIAXON-DINATRIUM) [Suspect]
     Indication: TONSILLITIS
     Route: 030
     Dates: start: 20130924, end: 20130924

REACTIONS (3)
  - Erythema [None]
  - Conjunctival hyperaemia [None]
  - Paraesthesia oral [None]
